FAERS Safety Report 4398534-1 (Version None)
Quarter: 2004Q3

REPORT INFORMATION
  Report Type: 
  Country: None (occurrence: None)
  Receive Date: 20040713
  Receipt Date: 20040630
  Transmission Date: 20050211
  Serious: Yes (Hospitalization)
  Sender: FDA-Public Use
  Company Number: 2004221577CZ

PATIENT
  Age: 57 Year
  Sex: Male

DRUGS (2)
  1. DETRUSITOL (TOLTERODINE) TABLET [Suspect]
     Indication: MICTURITION URGENCY
     Dosage: ORAL
     Route: 048
  2. INSULIN [Concomitant]

REACTIONS (2)
  - DIABETIC GANGRENE [None]
  - TOE AMPUTATION [None]
